FAERS Safety Report 16337322 (Version 1)
Quarter: 2019Q2

REPORT INFORMATION
  Report Type: Spontaneous
  Country: US (occurrence: US)
  Receive Date: 20190520
  Receipt Date: 20190520
  Transmission Date: 20190711
  Serious: Yes (Other)
  Sender: FDA-Public Use
  Company Number: None

PATIENT
  Age: 25 Year
  Sex: Female

DRUGS (3)
  1. FERROUS SULFATE. [Concomitant]
     Active Substance: FERROUS SULFATE
  2. CLARITIN [Concomitant]
     Active Substance: LORATADINE
  3. VIVITROL [Suspect]
     Active Substance: NALTREXONE
     Dosage: ?          OTHER FREQUENCY:Q 28 DAYS;?
     Route: 030

REACTIONS (1)
  - Injection site swelling [None]

NARRATIVE: CASE EVENT DATE: 20190515
